FAERS Safety Report 7773050-5 (Version None)
Quarter: 2011Q3

REPORT INFORMATION
  Report Type: 
  Country: None (occurrence: None)
  Receive Date: 20110922
  Receipt Date: 20110304
  Transmission Date: 20111222
  Serious: No
  Sender: FDA-Public Use
  Company Number: US-ASTRAZENECA-2011SE12084

PATIENT
  Age: 35 Year
  Sex: Male
  Weight: 115.7 kg

DRUGS (4)
  1. SEROQUEL XR [Suspect]
     Indication: ANXIETY
     Route: 048
  2. XANEX [Concomitant]
     Indication: ANXIETY
  3. SEROQUEL XR [Suspect]
     Indication: DEPRESSION
     Route: 048
  4. XANEX [Concomitant]
     Indication: DEPRESSION

REACTIONS (3)
  - ANGER [None]
  - HYPOTHYROIDISM [None]
  - HEART RATE IRREGULAR [None]
